FAERS Safety Report 9221583 (Version 1)
Quarter: 2013Q2

REPORT INFORMATION
  Report Type: Spontaneous
  Country: GB (occurrence: None)
  Receive Date: 20130408
  Receipt Date: 20130408
  Transmission Date: 20140414
  Serious: Yes (Hospitalization, Other)
  Sender: FDA-Public Use
  Company Number: AUR-APL-2009-01693

PATIENT
  Age: 15 Year
  Sex: Female

DRUGS (3)
  1. FLUOXETINE (FLUOXETINE) (FLUOXETINE) [Suspect]
     Dosage: 1IN 1 DAY
  2. MIRTAZAPINE (MIRTAZAPINE) [Suspect]
  3. QUETIAPINE [Suspect]
     Dosage: 100 MG (50 MG, 2 IN 1 D), UNKNOWN

REACTIONS (2)
  - Suicidal ideation [None]
  - Intentional self-injury [None]
